FAERS Safety Report 10072226 (Version 1)
Quarter: 2014Q2

REPORT INFORMATION
  Report Type: Report from Study
  Country: BR (occurrence: BR)
  Receive Date: 20140411
  Receipt Date: 20140411
  Transmission Date: 20141212
  Serious: Yes (Other)
  Sender: FDA-Public Use
  Company Number: PHHY2014BR043378

PATIENT
  Sex: Female
  Weight: 44 kg

DRUGS (4)
  1. ACLASTA [Suspect]
     Indication: OSTEOPOROSIS
     Dosage: UNK (ONCE, ANNUALLY)
     Route: 042
  2. ENSURE [Concomitant]
     Indication: SUPPLEMENTATION THERAPY
     Dosage: 6 DF, 6 SPOONS
     Dates: start: 2011
  3. AGIOLAX [Concomitant]
     Indication: CONSTIPATION
     Dosage: UNK
  4. OSCAL D                            /00944201/ [Concomitant]
     Indication: OSTEOPOROSIS
     Dosage: 2 DF, DAILY
     Dates: start: 2004, end: 201401

REACTIONS (2)
  - Parkinson^s disease [Not Recovered/Not Resolved]
  - Dementia Alzheimer^s type [Not Recovered/Not Resolved]
